FAERS Safety Report 9437048 (Version 1)
Quarter: 2013Q3

REPORT INFORMATION
  Report Type: Spontaneous
  Country: BR (occurrence: BR)
  Receive Date: 20130802
  Receipt Date: 20130802
  Transmission Date: 20140515
  Serious: Yes (Other)
  Sender: FDA-Public Use
  Company Number: BR-PFIZER INC-2013222335

PATIENT
  Age: 80 Year
  Sex: Female
  Weight: 68 kg

DRUGS (4)
  1. LIPITOR [Suspect]
     Indication: BLOOD CHOLESTEROL
     Dosage: UNSPECIFIED DOSE, 1X/DAY
     Dates: start: 20090109
  2. MACRODANTINA [Concomitant]
     Indication: URINARY TRACT INFECTION
     Dosage: UNSPECIFIED DOSE, 1X/DAY
     Dates: start: 20130710
  3. OTILONIUM BROMIDE [Concomitant]
     Indication: IRRITABLE BOWEL SYNDROME
     Dosage: UNSPECIFIED DOSE, 2X/DAY
     Dates: start: 2012
  4. OTILONIUM BROMIDE [Concomitant]
     Indication: GASTROINTESTINAL DISORDER

REACTIONS (1)
  - Cataract [Unknown]
